FAERS Safety Report 7402952-4 (Version None)
Quarter: 2011Q2

REPORT INFORMATION
  Report Type: 
  Country: None (occurrence: None)
  Receive Date: 20110401
  Receipt Date: 20110325
  Transmission Date: 20111010
  Serious: Yes (Other)
  Sender: FDA-Public Use
  Company Number: A0920081A

PATIENT
  Age: 81 Year
  Sex: Male

DRUGS (18)
  1. TIOTROPIUM [Concomitant]
  2. GLIPIZIDE [Concomitant]
  3. SIMVASTATIN [Concomitant]
  4. VITAMIN B [Concomitant]
  5. ESTER-C [Concomitant]
  6. PRAMOCAINE HYDROCHLORIDE LOTION (PRAMOCAINE HYDROCHLORIDE) [Suspect]
     Indication: DRY SKIN
     Dosage: 1 APPLICATION(S) / SINGLE DOSE / TOPICAL
     Route: 061
     Dates: start: 20110317, end: 20110317
  7. THIAMINE HYDROCHLORIDE [Concomitant]
  8. MAGNESIUM SALT [Concomitant]
  9. ANTACID TAB [Concomitant]
  10. EXENATIDE [Concomitant]
  11. INT./LONG-ACTING INSULIN [Concomitant]
  12. ASPIRIN [Concomitant]
  13. HYDROCHLOROTHIAZIDE [Concomitant]
  14. PIOGLITAZONE [Concomitant]
  15. LISINOPRIL [Concomitant]
  16. FISH OIL [Concomitant]
  17. ZINC SALT [Concomitant]
  18. FLUTICASONE+SALMETEROL [Concomitant]

REACTIONS (3)
  - APPLICATION SITE URTICARIA [None]
  - DRUG INEFFECTIVE [None]
  - ANAPHYLACTIC REACTION [None]
